FAERS Safety Report 13567356 (Version 2)
Quarter: 2017Q2

REPORT INFORMATION
  Report Type: Spontaneous
  Country: JP (occurrence: JP)
  Receive Date: 20170522
  Receipt Date: 20170623
  Transmission Date: 20170830
  Serious: Yes (Other)
  Sender: FDA-Public Use
  Company Number: JP-BAYER-2017-090649

PATIENT
  Age: 69 Year
  Sex: Male
  Weight: 64 kg

DRUGS (5)
  1. ADRENALINE [Concomitant]
     Active Substance: EPINEPHRINE
     Dosage: 1 MG, QD
     Route: 041
  2. BAYASPIRIN 100 MG [Suspect]
     Active Substance: ASPIRIN
     Dosage: 100 MG, QD
     Route: 048
  3. PRASUGREL. [Interacting]
     Active Substance: PRASUGREL
     Dosage: 20 MG, QD
     Route: 048
  4. ANCARON [Concomitant]
     Active Substance: AMIODARONE HYDROCHLORIDE
     Dosage: 125 MG, QD
     Route: 041
  5. HEPARIN [Concomitant]
     Active Substance: HEPARIN SODIUM
     Indication: ANTICOAGULANT THERAPY
     Dosage: 10000 DF, QD

REACTIONS (5)
  - Traumatic liver injury [None]
  - Shock [None]
  - Labelled drug-drug interaction medication error [None]
  - Contraindicated product administered [None]
  - Intra-abdominal haemorrhage [None]
